FAERS Safety Report 6747422-1 (Version None)
Quarter: 2010Q2

REPORT INFORMATION
  Report Type: 
  Country: None (occurrence: None)
  Receive Date: 20100528
  Receipt Date: 20100506
  Transmission Date: 20101027
  Serious: Yes (Other)
  Sender: FDA-Public Use
  Company Number: US-JNJFOC-20100506351

PATIENT
  Age: 1 Year
  Sex: Male
  Weight: 10.43 kg

DRUGS (10)
  1. CONCENTRATED TYLENOL INFANT DROPS [Suspect]
     Route: 048
  2. CONCENTRATED TYLENOL INFANT DROPS [Suspect]
     Indication: TEETHING
     Route: 048
  3. CHILDREN'S TYLENOL  LIQUID CHERRY BLAST [Suspect]
     Route: 048
  4. CHILDREN'S TYLENOL  LIQUID CHERRY BLAST [Suspect]
     Indication: TEETHING
     Route: 048
  5. CHILDREN'S MOTRIN [Suspect]
     Indication: TEETHING
     Route: 048
  6. CHILDREN'S MOTRIN [Suspect]
     Indication: MALAISE
     Route: 048
  7. CHILDREN'S MOTRIN [Suspect]
     Route: 048
  8. CHILDREN'S MOTRIN [Suspect]
     Indication: MALAISE
     Route: 048
  9. ZYRTEC [Suspect]
     Indication: MULTIPLE ALLERGIES
     Route: 048
  10. ZYRTEC [Suspect]
     Indication: MALAISE
     Route: 048

REACTIONS (6)
  - CHILLS [None]
  - EATING DISORDER [None]
  - INSOMNIA [None]
  - PRODUCT QUALITY ISSUE [None]
  - PYREXIA [None]
  - TRANSMISSION OF AN INFECTIOUS AGENT VIA A MEDICINAL PRODUCT [None]
